FAERS Safety Report 8609320-8 (Version None)
Quarter: 2012Q3

REPORT INFORMATION
  Report Type: 
  Country: None (occurrence: None)
  Receive Date: 20120821
  Receipt Date: 20120815
  Transmission Date: 20120928
  Serious: Yes (Hospitalization)
  Sender: FDA-Public Use
  Company Number: PHHY2012BR055977

PATIENT
  Sex: Female

DRUGS (6)
  1. ESCITALOPRAM [Concomitant]
     Indication: DEPRESSION
     Dosage: 1 DF, QD
  2. CLONAZEPAM [Concomitant]
     Indication: INSOMNIA
     Dosage: 1 DF, QD
  3. GILENYA [Suspect]
     Indication: MULTIPLE SCLEROSIS
     Dosage: 0.5 MG, QD
     Route: 048
  4. ESCITALOPRAM [Concomitant]
     Indication: PAIN
  5. TRAMADOL HYDROCHLORIDE [Concomitant]
     Indication: ARTHRALGIA
     Dosage: 10 DRP, Q6H
  6. LYRICA [Concomitant]
     Indication: ARTHRALGIA
     Dosage: 2 DF, DAILY

REACTIONS (11)
  - CONDITION AGGRAVATED [None]
  - FATIGUE [None]
  - INFLUENZA [None]
  - OVERDOSE [None]
  - APHONIA [None]
  - GAIT DISTURBANCE [None]
  - ASTHENIA [None]
  - NEURALGIA [None]
  - OROPHARYNGEAL PAIN [None]
  - ARTHRALGIA [None]
  - VOCAL CORD INFLAMMATION [None]
